FAERS Safety Report 5798368-7 (Version None)
Quarter: 2008Q3

REPORT INFORMATION
  Report Type: 
  Country: None (occurrence: None)
  Receive Date: 20080702
  Receipt Date: 20070927
  Transmission Date: 20090109
  Serious: No
  Sender: FDA-Public Use
  Company Number: A0684722A

PATIENT
  Age: 41 Year
  Sex: Male

DRUGS (5)
  1. PARNATE [Suspect]
     Indication: DEPRESSION
     Dosage: 90MG VARIABLE DOSE
     Route: 048
     Dates: start: 19980101
  2. CARDIZEM LA [Concomitant]
  3. CARDURA [Concomitant]
  4. ARICEPT [Concomitant]
  5. EYE DROPS [Concomitant]

REACTIONS (3)
  - BLOOD PRESSURE INCREASED [None]
  - DAYDREAMING [None]
  - DRUG INEFFECTIVE [None]
